FAERS Safety Report 7562897-6 (Version None)
Quarter: 2011Q2

REPORT INFORMATION
  Report Type: 
  Country: None (occurrence: None)
  Receive Date: 20110622
  Receipt Date: 20110609
  Transmission Date: 20111010
  Serious: Yes (Other)
  Sender: FDA-Public Use
  Company Number: CA-ROCHE-782260

PATIENT
  Sex: Male
  Weight: 56.7 kg

DRUGS (2)
  1. BEVACIZUMAB [Suspect]
     Route: 042
     Dates: start: 20100716, end: 20110516
  2. TEGRETOL [Concomitant]

REACTIONS (3)
  - ALANINE AMINOTRANSFERASE INCREASED [None]
  - BLOOD LACTATE DEHYDROGENASE INCREASED [None]
  - ASPARTATE AMINOTRANSFERASE INCREASED [None]
